FAERS Safety Report 5128719-8 (Version None)
Quarter: 2006Q4

REPORT INFORMATION
  Report Type: 
  Country: None (occurrence: None)
  Receive Date: 20061017
  Receipt Date: 20061005
  Transmission Date: 20070319
  Serious: Yes (Disabling)
  Sender: FDA-Public Use
  Company Number: FR-GILEAD-2006-0010391

PATIENT
  Age: 26 Year
  Sex: Female

DRUGS (3)
  1. TRUVADA [Suspect]
     Route: 048
     Dates: start: 20060524, end: 20060803
  2. INVIRASE [Concomitant]
     Indication: HIV INFECTION
     Route: 048
     Dates: start: 20060524, end: 20060803
  3. NORVIR [Concomitant]
     Indication: HIV INFECTION
     Route: 048
     Dates: start: 20060524, end: 20060803

REACTIONS (3)
  - POLYDIPSIA [None]
  - POLYURIA [None]
  - VERTIGO [None]
